FAERS Safety Report 6415981-4 (Version None)
Quarter: 2009Q4

REPORT INFORMATION
  Report Type: 
  Country: None (occurrence: None)
  Receive Date: 20091027
  Receipt Date: 20091026
  Transmission Date: 20100525
  Serious: Yes (Hospitalization)
  Sender: FDA-Public Use
  Company Number: A0813316A

PATIENT
  Age: 67 Year
  Sex: Male
  Weight: 136 kg

DRUGS (3)
  1. ALLI [Suspect]
     Indication: WEIGHT CONTROL
     Dosage: 1CAP SEE DOSAGE TEXT
     Route: 048
     Dates: start: 20070101, end: 20091024
  2. DIABETES MEDICATION [Suspect]
     Route: 048
  3. CAT SCAN DYE [Suspect]
     Route: 065

REACTIONS (9)
  - APPENDICECTOMY [None]
  - APPENDICITIS [None]
  - BLOOD GLUCOSE DECREASED [None]
  - CONSTIPATION [None]
  - DIARRHOEA [None]
  - RENAL FAILURE ACUTE [None]
  - RENAL IMPAIRMENT [None]
  - THERAPEUTIC RESPONSE UNEXPECTED [None]
  - TREATMENT NONCOMPLIANCE [None]
